FAERS Safety Report 8250842-X (Version None)
Quarter: 2012Q2

REPORT INFORMATION
  Report Type: 
  Country: None (occurrence: None)
  Receive Date: 20120402
  Receipt Date: 20120321
  Transmission Date: 20120825
  Serious: Yes (Hospitalization)
  Sender: FDA-Public Use
  Company Number: PHHY2012AR025454

PATIENT
  Sex: Male

DRUGS (2)
  1. ONBREZ [Suspect]
     Indication: CHRONIC OBSTRUCTIVE PULMONARY DISEASE
     Dosage: 1 DF, QD
  2. ONBREZ [Suspect]
     Indication: EMPHYSEMA

REACTIONS (2)
  - DYSPNOEA [None]
  - PULMONARY OEDEMA [None]
